FAERS Safety Report 6533934-2 (Version None)
Quarter: 2010Q1

REPORT INFORMATION
  Report Type: 
  Country: None (occurrence: None)
  Receive Date: 20100112
  Receipt Date: 20100107
  Transmission Date: 20100710
  Serious: Yes (Hospitalization)
  Sender: FDA-Public Use
  Company Number: US-RB-025185-09

PATIENT
  Age: 57 Year
  Sex: Male

DRUGS (3)
  1. SUBOXONE [Suspect]
     Route: 060
     Dates: start: 20090801
  2. BC POWDER [Suspect]
     Dosage: UNKNOWN DOSING DETAILS
     Route: 048
     Dates: end: 20091228
  3. TRAZODONE HCL [Concomitant]
     Indication: INSOMNIA
     Dosage: UNKNOWN DOSING DETAILS
     Route: 065

REACTIONS (13)
  - ABDOMINAL PAIN UPPER [None]
  - AMNESIA [None]
  - BLOOD PRESSURE DECREASED [None]
  - CRYING [None]
  - DEPRESSION [None]
  - DIZZINESS [None]
  - FATIGUE [None]
  - GASTRIC ULCER [None]
  - HAEMATOCHEZIA [None]
  - HEADACHE [None]
  - INSOMNIA [None]
  - MUSCLE SPASMS [None]
  - NERVOUSNESS [None]
